FAERS Safety Report 8909111 (Version 2)
Quarter: 2014Q2

REPORT INFORMATION
  Report Type: Spontaneous
  Country: GB (occurrence: GB)
  Receive Date: 20121114
  Receipt Date: 20131018
  Transmission Date: 20141212
  Serious: Yes (Life-Threatening)
  Sender: FDA-Public Use
  Company Number: GB-PFIZER INC-2012284141

PATIENT
  Age: 37 Year
  Sex: Female
  Weight: 59 kg

DRUGS (3)
  1. MORPHINE SULFATE [Suspect]
     Dosage: UNK
     Route: 065
     Dates: start: 20121023
  2. CO-CODAMOL [Concomitant]
     Dosage: UNK
     Dates: start: 20121016
  3. OVRANETTE [Concomitant]
     Dosage: UNK
     Dates: start: 20120918

REACTIONS (1)
  - Swelling face [Recovered/Resolved]
